FAERS Safety Report 19471953 (Version 2)
Quarter: 2021Q4

REPORT INFORMATION
  Report Type: Other
  Country: CA (occurrence: None)
  Receive Date: 20210629
  Receipt Date: 20211215
  Transmission Date: 20220304
  Serious: Yes (Other)
  Sender: FDA-Public Use
  Company Number: CA-ROCHE-1192421

PATIENT
  Age: 46 Year
  Sex: Female
  Weight: 68 kg

DRUGS (29)
  1. RITUXAN [Suspect]
     Active Substance: RITUXIMAB
     Indication: Pemphigus
     Dosage: STRENGTH: 10 MG/ML
     Route: 042
     Dates: start: 20130213
  2. RITUXAN [Suspect]
     Active Substance: RITUXIMAB
     Indication: Pemphigoid
     Dosage: LAST DOSE OF RITUXIMAB: 23/NOV/2017
     Route: 042
     Dates: start: 20150302
  3. RITUXAN [Suspect]
     Active Substance: RITUXIMAB
     Dosage: 10MG/ML, REPEAT IN 2 WEEKS
     Route: 042
  4. METHOTREXATE [Suspect]
     Active Substance: METHOTREXATE
     Indication: Product used for unknown indication
     Route: 048
     Dates: start: 2019
  5. MORPHINE [Concomitant]
     Active Substance: MORPHINE
  6. MYCOPHENOLATE MOFETIL [Concomitant]
     Active Substance: MYCOPHENOLATE MOFETIL
  7. LORAZEPAM [Concomitant]
     Active Substance: LORAZEPAM
  8. DEMEROL [Concomitant]
     Active Substance: MEPERIDINE HYDROCHLORIDE
  9. ACYCLOVIR [Concomitant]
     Active Substance: ACYCLOVIR
  10. GABAPENTIN [Concomitant]
     Active Substance: GABAPENTIN
  11. CLINDAMYCIN [Concomitant]
     Active Substance: CLINDAMYCIN
  12. LIDOCAINE [Concomitant]
     Active Substance: LIDOCAINE
  13. NYSTATIN [Concomitant]
     Active Substance: NYSTATIN
  14. MORPHINE SULFATE [Concomitant]
     Active Substance: MORPHINE SULFATE
  15. FLUCONAZOLE [Concomitant]
     Active Substance: FLUCONAZOLE
  16. VITAMIN C [Concomitant]
     Active Substance: ASCORBIC ACID
  17. HERBALS\SPIRULINA [Concomitant]
     Active Substance: HERBALS\SPIRULINA
  18. DIETARY SUPPLEMENT\HERBALS\MILK THISTLE [Concomitant]
     Active Substance: DIETARY SUPPLEMENT\HERBALS\MILK THISTLE
  19. DIPHENHYDRAMINE HYDROCHLORIDE [Concomitant]
     Active Substance: DIPHENHYDRAMINE HYDROCHLORIDE
     Indication: Premedication
     Route: 042
     Dates: start: 20130213
  20. ACETAMINOPHEN [Concomitant]
     Active Substance: ACETAMINOPHEN
     Indication: Premedication
     Route: 048
     Dates: start: 20130213
  21. PREDNISONE [Concomitant]
     Active Substance: PREDNISONE
  22. AZATHIOPRINE [Concomitant]
     Active Substance: AZATHIOPRINE
  23. METHYLPREDNISOLONE [Concomitant]
     Active Substance: METHYLPREDNISOLONE
     Route: 042
     Dates: start: 20130213
  24. ALENDRONATE [Concomitant]
     Active Substance: ALENDRONATE SODIUM
  25. ALENDRONATE [Concomitant]
     Active Substance: ALENDRONATE SODIUM
  26. CELEBREX [Concomitant]
     Active Substance: CELECOXIB
  27. FOLIC ACID [Concomitant]
     Active Substance: FOLIC ACID
  28. RAMIPRIL [Concomitant]
     Active Substance: RAMIPRIL
  29. HYDROMORPHONE [Concomitant]
     Active Substance: HYDROMORPHONE
     Indication: Arthralgia

REACTIONS (31)
  - Arthritis [Not Recovered/Not Resolved]
  - Lung abscess [Recovered/Resolved]
  - Infusion related reaction [Unknown]
  - Sepsis [Unknown]
  - Urticaria [Unknown]
  - Pemphigus [Unknown]
  - Oral mucosal blistering [Unknown]
  - Tongue disorder [Unknown]
  - Blood pressure increased [Unknown]
  - Anxiety [Unknown]
  - Infusion related reaction [Unknown]
  - Blood pressure increased [Unknown]
  - Body temperature increased [Unknown]
  - Blood pressure fluctuation [Unknown]
  - Influenza [Unknown]
  - Rash [Recovered/Resolved]
  - Ill-defined disorder [Not Recovered/Not Resolved]
  - Circumstance or information capable of leading to medication error [Unknown]
  - Aphthous ulcer [Not Recovered/Not Resolved]
  - Pruritus [Recovered/Resolved]
  - Pruritus [Recovered/Resolved]
  - Infusion related reaction [Recovered/Resolved]
  - Fatigue [Not Recovered/Not Resolved]
  - Pain [Unknown]
  - Nausea [Not Recovered/Not Resolved]
  - Aphonia [Not Recovered/Not Resolved]
  - Infusion related reaction [Recovered/Resolved]
  - Infection [Unknown]
  - White blood cell count decreased [Unknown]
  - Hot flush [Unknown]
  - Off label use [Unknown]

NARRATIVE: CASE EVENT DATE: 20130213
